FAERS Safety Report 21786581 (Version 3)
Quarter: 2023Q2

REPORT INFORMATION
  Report Type: Spontaneous
  Country: US (occurrence: US)
  Receive Date: 20221228
  Receipt Date: 20230405
  Transmission Date: 20230722
  Serious: No
  Sender: FDA-Public Use
  Company Number: US-SA-SAC20221227000129

PATIENT
  Age: 63 Year
  Sex: Female
  Weight: 182 kg

DRUGS (10)
  1. AUBAGIO [Suspect]
     Active Substance: TERIFLUNOMIDE
     Indication: Multiple sclerosis
     Dosage: 14 MG, QD
     Route: 048
     Dates: start: 2011
  2. VITAMIN D3 [Concomitant]
     Active Substance: CHOLECALCIFEROL
     Indication: Vitamin D deficiency
     Dosage: 3000 U, QD
     Route: 048
  3. ZOFRAN [Concomitant]
     Active Substance: ONDANSETRON HYDROCHLORIDE
     Indication: Nausea
     Dosage: 4 MG
     Route: 048
  4. IMITREX [Concomitant]
     Active Substance: SUMATRIPTAN SUCCINATE
     Indication: Migraine
     Dosage: 100 MG, PRN
     Route: 048
  5. TIROSINT-SOL [Concomitant]
     Active Substance: LEVOTHYROXINE SODIUM
  6. ZINC SULFATE [ZINC SULFATE MONOHYDRATE] [Concomitant]
     Indication: Supplementation therapy
     Dosage: 1 DF, QD
     Route: 048
  7. CALCIUM [Concomitant]
     Active Substance: CALCIUM
     Indication: Supplementation therapy
     Dosage: 1500 MG, QD
     Route: 048
  8. MAGNESIUM [Concomitant]
     Active Substance: MAGNESIUM
     Indication: Migraine
     Dosage: 400 MG, QD
     Route: 048
  9. MOMETASONE FUROATE [Concomitant]
     Active Substance: MOMETASONE FUROATE
     Dosage: 50 UG, QD
     Route: 045
  10. TYROSINE [Concomitant]
     Active Substance: TYROSINE

REACTIONS (1)
  - Foot operation [Recovered/Resolved]

NARRATIVE: CASE EVENT DATE: 20220920
